FAERS Safety Report 12139155 (Version 1)
Quarter: 2016Q1

REPORT INFORMATION
  Report Type: Spontaneous
  Country: CA (occurrence: CA)
  Receive Date: 20160302
  Receipt Date: 20160302
  Transmission Date: 20160526
  Serious: Yes (Other)
  Sender: FDA-Public Use
  Company Number: CA-HOSPIRA-3195047

PATIENT
  Age: 58 Year
  Sex: Female

DRUGS (8)
  1. PHENOBARBITAL. [Concomitant]
     Active Substance: PHENOBARBITAL
     Indication: THERAPEUTIC PROCEDURE
     Route: 049
  2. MIDAZOLAM [Suspect]
     Active Substance: MIDAZOLAM\MIDAZOLAM HYDROCHLORIDE
     Indication: THERAPEUTIC PROCEDURE
  3. ISOFLURANE. [Suspect]
     Active Substance: ISOFLURANE
     Indication: THERAPEUTIC PROCEDURE
  4. KETAMINE [Concomitant]
     Active Substance: KETAMINE
     Indication: THERAPEUTIC PROCEDURE
  5. PROPOFOL. [Suspect]
     Active Substance: PROPOFOL
     Indication: THERAPEUTIC PROCEDURE
  6. PHENYTOIN. [Concomitant]
     Active Substance: PHENYTOIN
     Indication: THERAPEUTIC PROCEDURE
  7. VALPROIC ACID. [Concomitant]
     Active Substance: VALPROIC ACID
     Indication: THERAPEUTIC PROCEDURE
  8. LEVETIRACETAM. [Concomitant]
     Active Substance: LEVETIRACETAM
     Indication: THERAPEUTIC PROCEDURE

REACTIONS (1)
  - Intestinal ischaemia [Unknown]
